FAERS Safety Report 9216562 (Version 1)
Quarter: 2013Q2

REPORT INFORMATION
  Report Type: Spontaneous
  Country: MX (occurrence: None)
  Receive Date: 20130404
  Receipt Date: 20130404
  Transmission Date: 20140414
  Serious: Yes (Hospitalization, Other)
  Sender: FDA-Public Use
  Company Number: ENTC2013-0124

PATIENT
  Age: 79 Year
  Sex: Female

DRUGS (3)
  1. STALEVO (LEVODOPA, CARBIDOPA, ENTACAPONE) [Suspect]
     Indication: PARKINSON^S DISEASE
     Dosage: (50/12.5/200 MG)
     Dates: start: 20121208, end: 20121223
  2. CLOIZONE [Concomitant]
  3. LEVOTIDOXINE [Concomitant]

REACTIONS (3)
  - Generalised oedema [None]
  - Pneumonia [None]
  - Cerebral infarction [None]
